FAERS Safety Report 5513074-1 (Version None)
Quarter: 2007Q4

REPORT INFORMATION
  Report Type: 
  Country: None (occurrence: None)
  Receive Date: 20071112
  Receipt Date: 20071022
  Transmission Date: 20080405
  Serious: No
  Sender: FDA-Public Use
  Company Number: US-ABBOTT-07P-163-0421721-00

PATIENT
  Sex: Male
  Weight: 72.64 kg

DRUGS (3)
  1. TRICOR [Suspect]
     Indication: BLOOD TRIGLYCERIDES INCREASED
     Route: 048
     Dates: start: 20071004, end: 20071007
  2. FLUVASTATIN [Suspect]
     Indication: BLOOD CHOLESTEROL INCREASED
     Route: 048
  3. FLUVASTATIN [Suspect]
     Indication: BLOOD TRIGLYCERIDES

REACTIONS (1)
  - MYALGIA [None]
